FAERS Safety Report 24829009 (Version 1)
Quarter: 2025Q1

REPORT INFORMATION
  Report Type: Spontaneous
  Country: PL (occurrence: PL)
  Receive Date: 20250110
  Receipt Date: 20250110
  Transmission Date: 20250409
  Serious: Yes (Other)
  Sender: TEVA
  Company Number: None

PATIENT
  Age: 37 Year
  Sex: Male
  Weight: 102 kg

DRUGS (2)
  1. OSELTAMIVIR PHOSPHATE [Suspect]
     Active Substance: OSELTAMIVIR PHOSPHATE
     Indication: Product used for unknown indication
     Route: 048
     Dates: start: 20240917, end: 20240919
  2. BIORACEF [Concomitant]
     Indication: Product used for unknown indication
     Dosage: THERAPY ONGOING
     Route: 048
     Dates: start: 20240917

REACTIONS (3)
  - Pain in extremity [Not Recovered/Not Resolved]
  - Grip strength decreased [Not Recovered/Not Resolved]
  - Hypoaesthesia [Not Recovered/Not Resolved]

NARRATIVE: CASE EVENT DATE: 20240918
